FAERS Safety Report 7405840-2 (Version None)
Quarter: 2011Q2

REPORT INFORMATION
  Report Type: 
  Country: None (occurrence: None)
  Receive Date: 20110406
  Receipt Date: 20110406
  Transmission Date: 20111010
  Serious: No
  Sender: FDA-Public Use
  Company Number: None

PATIENT
  Age: 51 Year
  Sex: Female

DRUGS (2)
  1. PROPYLTHIOURACIL [Suspect]
     Dates: start: 20091217, end: 20100415
  2. AMOXICILLIN [Suspect]
     Dates: start: 20100326, end: 20100401

REACTIONS (9)
  - NAUSEA [None]
  - HEPATOTOXICITY [None]
  - CONDITION AGGRAVATED [None]
  - NO THERAPEUTIC RESPONSE [None]
  - LIVER INJURY [None]
  - ASTHMA [None]
  - HEPATIC NECROSIS [None]
  - DIZZINESS [None]
  - PERIPORTAL OEDEMA [None]
